FAERS Safety Report 11671266 (Version 1)
Quarter: 2015Q4

REPORT INFORMATION
  Report Type: Not Available
  Country: DE (occurrence: DE)
  Receive Date: 20151028
  Receipt Date: 20151028
  Transmission Date: 20160304
  Serious: Yes (Life-Threatening, Hospitalization)
  Sender: FDA-Public Use
  Company Number: DE-BEH-2015054929

PATIENT
  Age: 56 Year
  Sex: Female
  Weight: 69 kg

DRUGS (24)
  1. KALINOR - RETARD P [Concomitant]
     Dosage: 2-2-2-0 (600 MG)
     Route: 048
  2. MCP AL [Concomitant]
     Dosage: 1-0-1-0 (15 ML)
     Route: 048
  3. CALCILAC CHEWING TABLETS [Concomitant]
     Dosage: 0-2-2-0 (1 DOSAGE FORM)
     Route: 048
  4. LEVODOPA COM. B STADA 100 MG/25 MG [Concomitant]
     Dosage: 0-0-1-0 (100 MG/25 MG)
     Route: 048
  5. FRAXIPARIN [Concomitant]
     Active Substance: NADROPARIN CALCIUM
     Dosage: 0-0-1-0 (0.3 ML)
  6. MESTINON [Concomitant]
     Active Substance: PYRIDOSTIGMINE BROMIDE
     Dosage: 1-1/2-0-1
     Route: 048
  7. SPIRIVA 18 MIKROGRAMM [Concomitant]
     Dosage: 1-0-0-0
     Route: 055
  8. ESTRADOT 50 MIKROGRAMM [Concomitant]
     Dosage: 1-0-0-0
     Route: 062
  9. ALENDRON ACID HEUMANN [Concomitant]
     Dosage: 70 MG EVERY WEEK
     Route: 048
  10. RISPERIDON ABZ [Concomitant]
     Dosage: 0-1-0-0 (1 MG)
     Route: 048
  11. PREDNISOLON ACIS [Concomitant]
     Dosage: 7.5 MG-0-0-0 (20 MG)
     Route: 048
  12. MYCOPHENOLATMOFETIL HEUMANN [Concomitant]
     Dosage: 1-0-1-0 (500 MG)
     Route: 048
  13. PANTOPRAZOL STADA [Concomitant]
     Dosage: 1-0-1-0 (40 MG)
     Route: 048
  14. CITALOPRAM 1 A PHARMA [Concomitant]
     Dosage: 1-0-0-0 (40 MG)
     Route: 048
  15. LACTULOSE - 1 A PHARMA SIRUP [Concomitant]
     Dosage: 1-0-0-0 (10 ML)
     Route: 048
  16. LEVODOPA COM. B STADA 50 MG/12.5 MG [Concomitant]
     Dosage: 1-1-0-0 (50 MG/12.5 MG)
     Route: 048
  17. CRANBERRY JUNEK CAPSULES [Concomitant]
     Dosage: 1-0-1-0 (400 MG)
     Route: 048
  18. TARGIN 40 MG/20 MG [Concomitant]
     Dosage: 1-0-1-0 (40 MG/20 MG)
     Route: 048
  19. MADOPAR DEPOT [Concomitant]
     Active Substance: BENSERAZIDE HYDROCHLORIDE\LEVODOPA
     Dosage: 0-0-0-1
     Route: 048
  20. VISCO VISION GEL [Concomitant]
     Dosage: 1-0-1-0
  21. VIANI 25 UG/125 UG [Concomitant]
     Dosage: 2-0-2-0 (25 UG/125 UG)
     Route: 055
  22. PRIVIGEN [Suspect]
     Active Substance: HUMAN IMMUNOGLOBULIN G
     Indication: INFECTION PROPHYLAXIS
     Dosage: START DATE: SEP 2012; 30 ML IN 10% SOLUTION
     Route: 042
  23. VOLTAREN [Concomitant]
     Active Substance: DICLOFENAC SODIUM
     Dosage: 1-0-1-0
     Route: 048
  24. DEKRISTOL 20000 I.E. [Concomitant]
     Dosage: 2 DF DOSAGE FORM EVERY MONTH (1 DF DOSAGE FORM, 2 IN 1 MONTH)
     Route: 048

REACTIONS (2)
  - Anaphylactic shock [Unknown]
  - Status asthmaticus [Unknown]

NARRATIVE: CASE EVENT DATE: 20151002
